FAERS Safety Report 5611841-7 (Version None)
Quarter: 2008Q1

REPORT INFORMATION
  Report Type: 
  Country: None (occurrence: None)
  Receive Date: 20080128
  Receipt Date: 20080118
  Transmission Date: 20080703
  Serious: Yes (Life-Threatening, Hospitalization)
  Sender: FDA-Public Use
  Company Number: MEDI-0006321

PATIENT
  Age: 11 Month
  Sex: Male

DRUGS (4)
  1. SYNAGIS [Suspect]
     Indication: BRONCHOPULMONARY DYSPLASIA
     Dosage: 100, 1 IN 1 M, INTRAMUSCULAR
     Route: 030
     Dates: start: 20071016, end: 20071016
  2. SYNAGIS [Suspect]
     Indication: BRONCHOPULMONARY DYSPLASIA
     Dosage: 100, 1 IN 1 M, INTRAMUSCULAR
     Route: 030
     Dates: start: 20070101
  3. SYNAGIS [Suspect]
     Indication: BRONCHOPULMONARY DYSPLASIA
     Dosage: 100, 1 IN 1 M, INTRAMUSCULAR
     Route: 030
     Dates: start: 20070201
  4. OXYGEN (OXYGEN) [Concomitant]

REACTIONS (2)
  - BRONCHOSPASM [None]
  - PYREXIA [None]
